FAERS Safety Report 21820120 (Version 1)
Quarter: 2023Q1

REPORT INFORMATION
  Report Type: Spontaneous
  Country: US (occurrence: US)
  Receive Date: 20230105
  Receipt Date: 20230105
  Transmission Date: 20230417
  Serious: Yes (Other)
  Sender: FDA-Public Use
  Company Number: ENDG22-01095

PATIENT
  Age: 31 Year
  Sex: Female

DRUGS (1)
  1. PITOCIN [Suspect]
     Active Substance: OXYTOCIN
     Indication: Haemorrhage prophylaxis
     Dosage: 250 ML, INFUSION (CONTINUOUS) FOR ONE HOUR AND THEN AN ADDITIONAL DOSE AS NEEDED IF HAD BLEEDING
     Route: 041
     Dates: start: 20220212, end: 20220213

REACTIONS (2)
  - Postpartum haemorrhage [Recovered/Resolved]
  - Off label use [Recovered/Resolved]

NARRATIVE: CASE EVENT DATE: 20220212
